FAERS Safety Report 4888799-1 (Version None)
Quarter: 2006Q1

REPORT INFORMATION
  Report Type: 
  Country: None (occurrence: None)
  Receive Date: 20060123
  Receipt Date: 20051103
  Transmission Date: 20060701
  Serious: Yes (Other)
  Sender: FDA-Public Use
  Company Number: US-MERCK-0511USA00561

PATIENT
  Sex: Female

DRUGS (1)
  1. VIOXX [Suspect]
     Indication: LOWER LIMB FRACTURE
     Route: 048

REACTIONS (3)
  - CARDIAC MURMUR [None]
  - CARDIAC VALVE DISEASE [None]
  - ULCER [None]
